FAERS Safety Report 5828589-6 (Version None)
Quarter: 2008Q3

REPORT INFORMATION
  Report Type: 
  Country: None (occurrence: None)
  Receive Date: 20080731
  Receipt Date: 20080729
  Transmission Date: 20090109
  Serious: Yes (Disabling)
  Sender: FDA-Public Use
  Company Number: FR-BRISTOL-MYERS SQUIBB COMPANY-14281760

PATIENT
  Age: 53 Year
  Sex: Male

DRUGS (4)
  1. REYATAZ [Suspect]
     Indication: HIV INFECTION
  2. FLIXOTIDE [Suspect]
     Dates: start: 20071101, end: 20080626
  3. NORVIR [Suspect]
     Indication: HIV INFECTION
  4. KIVEXA [Suspect]
     Indication: HIV INFECTION
     Dosage: 1DF - 600MG/300MG

REACTIONS (1)
  - CUSHING'S SYNDROME [None]
